FAERS Safety Report 20317829 (Version 2)
Quarter: 2022Q1

REPORT INFORMATION
  Report Type: Spontaneous
  Country: US (occurrence: US)
  Receive Date: 20220110
  Receipt Date: 20220304
  Transmission Date: 20220424
  Serious: No
  Sender: FDA-Public Use
  Company Number: US-PFIZER INC-2020219789

PATIENT
  Age: 72 Year
  Sex: Female

DRUGS (1)
  1. DEPO-ESTRADIOL [Suspect]
     Active Substance: ESTRADIOL CYPIONATE
     Indication: Menopausal symptoms
     Dosage: 0.3 ML (1.5MG TOTAL) EVERY 28 DAYS
     Route: 030
     Dates: start: 20210518

REACTIONS (4)
  - Insomnia [Unknown]
  - Muscle spasms [Unknown]
  - Hot flush [Unknown]
  - Night sweats [Unknown]
